FAERS Safety Report 6799162-0 (Version None)
Quarter: 2010Q2

REPORT INFORMATION
  Report Type: 
  Country: None (occurrence: None)
  Receive Date: 20100615
  Receipt Date: 20100601
  Transmission Date: 20101027
  Serious: Yes (Hospitalization)
  Sender: FDA-Public Use
  Company Number: WAES 1006USA00534

PATIENT
  Age: 45 Year
  Sex: Female
  Weight: 76.6579 kg

DRUGS (13)
  1. DECADRON [Suspect]
     Dosage: SEE IMAGE
     Route: 048
     Dates: start: 20100329, end: 20100404
  2. DECADRON [Suspect]
     Dosage: SEE IMAGE
     Route: 048
     Dates: start: 20100405, end: 20100408
  3. DECADRON [Suspect]
     Dosage: SEE IMAGE
     Route: 048
     Dates: start: 20100424, end: 20100505
  4. DECADRON [Suspect]
     Dosage: SEE IMAGE
     Route: 048
     Dates: start: 20100506, end: 20100507
  5. DECADRON [Suspect]
     Dosage: SEE IMAGE
     Route: 048
     Dates: start: 20100508, end: 20100509
  6. DECADRON [Suspect]
     Dosage: SEE IMAGE
     Route: 048
     Dates: start: 20100510, end: 20100510
  7. DECADRON [Suspect]
     Dosage: SEE IMAGE
     Route: 048
     Dates: start: 20100409
  8. DECADRON [Suspect]
     Dosage: SEE IMAGE
     Route: 048
     Dates: start: 20100420
  9. DECADRON [Suspect]
     Dosage: SEE IMAGE
     Route: 048
     Dates: start: 20100423
  10. DILANTIN [Suspect]
     Dosage: 300 MG/QHS/PO
     Route: 048
     Dates: start: 20100505
  11. TYLENOL W/ CODEINE NO. 3 [Suspect]
     Dates: start: 20100420
  12. DECADRON [Suspect]
     Dosage: 10 MG/1X/IV
     Route: 042
     Dates: start: 20100409
  13. DECADRON [Suspect]
     Dosage: 10 MG/1X/IV
     Route: 042
     Dates: start: 20100423

REACTIONS (8)
  - ANAEMIA [None]
  - ASTHENIA [None]
  - CONFUSIONAL STATE [None]
  - FATIGUE [None]
  - METASTASES TO CENTRAL NERVOUS SYSTEM [None]
  - POST PROCEDURAL HAEMATOMA [None]
  - PULMONARY EMBOLISM [None]
  - SOMNOLENCE [None]
